FAERS Safety Report 6669289-2 (Version None)
Quarter: 2010Q2

REPORT INFORMATION
  Report Type: 
  Country: None (occurrence: None)
  Receive Date: 20100406
  Receipt Date: 20100329
  Transmission Date: 20101027
  Serious: Yes (Other)
  Sender: FDA-Public Use
  Company Number: US-BAYER-201018026NA

PATIENT
  Age: 58 Year
  Sex: Female
  Weight: 68 kg

DRUGS (1)
  1. AVELOX [Suspect]
     Indication: SINUS DISORDER
     Route: 048
     Dates: start: 20100115

REACTIONS (12)
  - ERYTHEMA [None]
  - EYE SWELLING [None]
  - HENOCH-SCHONLEIN PURPURA [None]
  - HYPERSENSITIVITY [None]
  - LIVEDO RETICULARIS [None]
  - MUSCULOSKELETAL STIFFNESS [None]
  - PARAESTHESIA ORAL [None]
  - PRURITUS [None]
  - RASH ERYTHEMATOUS [None]
  - SPEECH DISORDER [None]
  - STEVENS-JOHNSON SYNDROME [None]
  - URTICARIA [None]
